FAERS Safety Report 25400681 (Version 1)
Quarter: 2025Q2

REPORT INFORMATION
  Report Type: Spontaneous
  Country: DE (occurrence: DE)
  Receive Date: 20250605
  Receipt Date: 20250605
  Transmission Date: 20250716
  Serious: Yes (Hospitalization, Other)
  Sender: TEVA
  Company Number: None

PATIENT
  Age: 26 Year
  Sex: Male
  Weight: 69 kg

DRUGS (2)
  1. RISPERIDONE [Interacting]
     Active Substance: RISPERIDONE
     Indication: Substance-induced psychotic disorder
     Route: 048
     Dates: start: 20170601, end: 20180101
  2. CANNABIS SATIVA SUBSP. INDICA TOP [Interacting]
     Active Substance: CANNABIS SATIVA SUBSP. INDICA TOP
     Indication: Product used for unknown indication
     Dosage: CANNABIS (FLOWERS)
     Route: 065

REACTIONS (6)
  - Psychotic disorder [Unknown]
  - Delusion [Unknown]
  - Anxiety [Unknown]
  - Illusion [Unknown]
  - Cannabis interaction [Unknown]
  - Hyperacusis [Unknown]

NARRATIVE: CASE EVENT DATE: 20170601
